FAERS Safety Report 9129172 (Version 1)
Quarter: 2013Q1

REPORT INFORMATION
  Report Type: Report from Study
  Country: US (occurrence: US)
  Receive Date: 20130125
  Receipt Date: 20130125
  Transmission Date: 20140127
  Serious: Yes (Death)
  Sender: FDA-Public Use
  Company Number: US-TEVA-353970USA

PATIENT
  Sex: Male
  Weight: 70.37 kg

DRUGS (6)
  1. AZILECT [Suspect]
     Indication: PARKINSON^S DISEASE
     Dosage: 1 MILLIGRAM DAILY; OPEN-LABEL PHASE
     Route: 048
     Dates: start: 20060310
  2. AZILECT [Suspect]
     Dosage: RASAGILINE 1 OR 2 MG VS. PLACEBO
     Route: 048
     Dates: start: 20070523, end: 20120810
  3. SINEMET [Concomitant]
     Indication: PARKINSON^S DISEASE
     Dosage: 2 TABLET DAILY; 25/100- QAM
     Dates: start: 20090903, end: 20101108
  4. SINEMET [Concomitant]
     Dosage: 1.5 TABLET DAILY; 25/100- Q LUNCH
     Dates: start: 20090903, end: 20101108
  5. SINEMET [Concomitant]
     Dosage: 1 TABLET DAILY; 25/100- Q HS
     Dates: start: 20090903, end: 20101108
  6. SINEMET [Concomitant]
     Dosage: 1.5 TABLET DAILY; 25/100
     Dates: start: 20101109

REACTIONS (1)
  - Pulmonary fibrosis [Fatal]
